FAERS Safety Report 22596438 (Version 1)
Quarter: 2023Q2

REPORT INFORMATION
  Report Type: Spontaneous
  Country: US (occurrence: US)
  Receive Date: 20230613
  Receipt Date: 20230613
  Transmission Date: 20230722
  Serious: Yes (Other)
  Sender: FDA-Public Use
  Company Number: US-INNOCOLL PHARMACEUTICALS LIMITED-2023INN00001

PATIENT
  Age: 35 Year
  Sex: Male
  Weight: 96.145 kg

DRUGS (2)
  1. XARACOLL [Suspect]
     Active Substance: BUPIVACAINE
     Indication: Inguinal hernia repair
     Dosage: 300 MG, ONCE
     Dates: start: 20220705
  2. XARACOLL [Suspect]
     Active Substance: BUPIVACAINE
     Indication: Femoral hernia repair
     Dosage: 300 MG, ONCE (ONE INTO THE FEMORAL CANAL PLUG AND THE REMAINING 5 PIECES DEEP TO THE SCARPA^S FASCIA
     Dates: start: 20221206

REACTIONS (3)
  - Wound abscess [Recovering/Resolving]
  - Seroma [Recovering/Resolving]
  - Off label use [Recovered/Resolved]

NARRATIVE: CASE EVENT DATE: 20221206
